FAERS Safety Report 17273837 (Version 1)
Quarter: 2020Q1

REPORT INFORMATION
  Report Type: Spontaneous
  Country: US (occurrence: US)
  Receive Date: 20200115
  Receipt Date: 20200115
  Transmission Date: 20200409
  Serious: No
  Sender: FDA-Public Use
  Company Number: US-PERRIGO-19US004007

PATIENT
  Age: 32 Year
  Sex: Female
  Weight: 61.22 kg

DRUGS (1)
  1. IBUPROFEN. [Suspect]
     Active Substance: IBUPROFEN
     Indication: HEADACHE
     Dosage: 400 MG, QD
     Route: 048
     Dates: start: 20190323, end: 20190324

REACTIONS (7)
  - Oral papule [Recovering/Resolving]
  - Swollen tongue [Recovering/Resolving]
  - Dysgeusia [Recovering/Resolving]
  - Tongue discomfort [Recovering/Resolving]
  - Pharyngeal swelling [Recovering/Resolving]
  - Hypersensitivity [Recovering/Resolving]
  - Throat irritation [Recovering/Resolving]

NARRATIVE: CASE EVENT DATE: 20190324
